FAERS Safety Report 4313196-7 (Version None)
Quarter: 2004Q1

REPORT INFORMATION
  Report Type: 
  Country: None (occurrence: None)
  Receive Date: 20040308
  Receipt Date: 20040205
  Transmission Date: 20041129
  Serious: Yes (Hospitalization)
  Sender: FDA-Public Use
  Company Number: PHRM2004FR00734

PATIENT
  Age: 85 Year
  Sex: Female

DRUGS (11)
  1. TAREG [Suspect]
     Dosage: 1 DF, QD
     Route: 048
     Dates: end: 19990921
  2. ALDACTACINE [Suspect]
     Indication: HYPERTENSION
     Route: 048
     Dates: start: 19990913, end: 19990921
  3. HYPERIUM [Concomitant]
     Dosage: .5 MG, QD
     Route: 048
  4. PRAXILENE [Concomitant]
     Dosage: 400 MG, DAILY
     Route: 048
  5. RISORDAN [Concomitant]
     Dosage: 1 DF, QD
     Route: 048
  6. DILTIAZEM [Concomitant]
     Dosage: 200 MG, QD
     Route: 048
  7. ASASANTIN [Concomitant]
     Dosage: 1 DF, BID
     Route: 048
  8. CORDIPATCH [Concomitant]
     Dosage: 5 MG, DAILY
     Route: 003
  9. ZOCOR [Concomitant]
     Dosage: 20 MG, QD
     Route: 048
  10. DITROPAN [Concomitant]
     Dosage: 1 DF, BID
  11. DI-ANTALVIC [Concomitant]
     Dosage: 2 DF, TID
     Route: 048

REACTIONS (10)
  - ASTHENIA [None]
  - BLOOD CREATININE INCREASED [None]
  - BLOOD UREA DECREASED [None]
  - DEHYDRATION [None]
  - DRUG INTERACTION [None]
  - HYPERKALAEMIA [None]
  - HYPOCHLORAEMIA [None]
  - HYPONATRAEMIA [None]
  - NAUSEA [None]
  - RENAL FAILURE [None]
